FAERS Safety Report 7824322-7 (Version None)
Quarter: 2011Q4

REPORT INFORMATION
  Report Type: 
  Country: None (occurrence: None)
  Receive Date: 20111014
  Receipt Date: 20111007
  Transmission Date: 20120403
  Serious: Yes (Other)
  Sender: FDA-Public Use
  Company Number: 2011MA012697

PATIENT
  Age: 72 Year
  Sex: Female

DRUGS (2)
  1. ACYCLOVIR [Suspect]
     Indication: HERPES VIRUS INFECTION
     Dosage: 800 MG;X5;PO
     Route: 048
     Dates: start: 20041129
  2. ACETAMINOPHEN AND CODEINE PHOSPHATE [Concomitant]

REACTIONS (7)
  - DEMENTIA [None]
  - DEPRESSED MOOD [None]
  - SLEEP DISORDER [None]
  - GASTRITIS [None]
  - BRAIN INJURY [None]
  - PARKINSON'S DISEASE [None]
  - NAUSEA [None]
